FAERS Safety Report 7806552-3 (Version None)
Quarter: 2011Q4

REPORT INFORMATION
  Report Type: 
  Country: None (occurrence: None)
  Receive Date: 20111011
  Receipt Date: 20110926
  Transmission Date: 20120403
  Serious: Yes (Hospitalization)
  Sender: FDA-Public Use
  Company Number: JP-TYCO HEALTHCARE/MALLINCKRODT-T201101214

PATIENT
  Age: 48 Year
  Sex: Female

DRUGS (2)
  1. OPTIRAY 160 [Suspect]
     Indication: CATHETERISATION CARDIAC
     Dosage: 100 ML, SINGLE
     Route: 013
     Dates: start: 20110607, end: 20110607
  2. CHLORPHENIRAMINE MALEATE [Concomitant]
     Indication: PREMEDICATION
     Dosage: UNK
     Route: 048
     Dates: start: 20110607, end: 20110607

REACTIONS (1)
  - SHOCK [None]
